FAERS Safety Report 14204955 (Version 1)
Quarter: 2017Q4

REPORT INFORMATION
  Report Type: Spontaneous
  Country: US (occurrence: US)
  Receive Date: 20171119
  Receipt Date: 20171119
  Transmission Date: 20180321
  Serious: Yes (Other)
  Sender: FDA-Public Use
  Company Number: None

PATIENT
  Age: 53 Year
  Sex: Female
  Weight: 56.7 kg

DRUGS (7)
  1. GAMMAGLOBULIN INFUSION [Concomitant]
  2. HAIR SKIN AND NAILS [Concomitant]
  3. DEXTROAMPHET SACCHARAT, AMPHET ASPARTATE, DEXTROAMPHET SULFATE AND AMPHET SULFAT [Suspect]
     Active Substance: AMPHETAMINE ASPARTATE\AMPHETAMINE SULFATE\DEXTROAMPHETAMINE SACCHARATE\DEXTROAMPHETAMINE SULFATE
     Indication: ATTENTION DEFICIT/HYPERACTIVITY DISORDER
     Dosage: ?          QUANTITY:90 TABLET(S);?
     Route: 048
     Dates: start: 20171115, end: 20171117
  4. VENTOLIN [Concomitant]
     Active Substance: ALBUTEROL SULFATE
  5. SYNTHROID [Concomitant]
     Active Substance: LEVOTHYROXINE SODIUM
  6. ASMANEX [Concomitant]
     Active Substance: MOMETASONE FUROATE
  7. VITAMIN D3 [Concomitant]
     Active Substance: CHOLECALCIFEROL

REACTIONS (9)
  - Withdrawal syndrome [None]
  - Attention deficit/hyperactivity disorder [None]
  - Condition aggravated [None]
  - Dyspnoea [None]
  - Arthralgia [None]
  - Product substitution issue [None]
  - Headache [None]
  - Insurance issue [None]
  - Fatigue [None]

NARRATIVE: CASE EVENT DATE: 20171115
